FAERS Safety Report 15698141 (Version 1)
Quarter: 2018Q4

REPORT INFORMATION
  Report Type: Spontaneous
  Country: KR (occurrence: KR)
  Receive Date: 20181207
  Receipt Date: 20181207
  Transmission Date: 20190205
  Serious: Yes (Death, Hospitalization, Other)
  Sender: FDA-Public Use
  Company Number: KR-LUPIN PHARMACEUTICALS INC.-2018-08370

PATIENT
  Age: 72 Year
  Sex: Female

DRUGS (1)
  1. METRONIDAZOLE. [Suspect]
     Active Substance: METRONIDAZOLE
     Indication: PERITONITIS BACTERIAL
     Dosage: 500 MG, TID (CUMULATIVE DOSE OF 33GFOR A DURATION OF 22 DAYS)
     Route: 048

REACTIONS (3)
  - Toxic encephalopathy [Recovering/Resolving]
  - Acute kidney injury [Fatal]
  - Metabolic acidosis [Fatal]
